FAERS Safety Report 5528693-6 (Version None)
Quarter: 2007Q4

REPORT INFORMATION
  Report Type: 
  Country: None (occurrence: None)
  Receive Date: 20071113
  Receipt Date: 20070307
  Transmission Date: 20080405
  Serious: Yes (Other)
  Sender: FDA-Public Use
  Company Number: HQWYE080308MAR07

PATIENT
  Age: 47 Year
  Sex: Female
  Weight: 68.1 kg

DRUGS (2)
  1. INDERAL [Suspect]
     Indication: ARRHYTHMIA
     Dosage: 120-160 MG DAILY, ORAL
     Route: 048
     Dates: end: 20070218
  2. INDERAL [Suspect]
     Indication: VENTRICULAR EXTRASYSTOLES
     Dosage: 120-160 MG DAILY, ORAL
     Route: 048
     Dates: end: 20070218

REACTIONS (4)
  - DYSPNOEA [None]
  - LUPUS-LIKE SYNDROME [None]
  - MEMORY IMPAIRMENT [None]
  - WEIGHT INCREASED [None]
